FAERS Safety Report 20087369 (Version 2)
Quarter: 2021Q4

REPORT INFORMATION
  Report Type: Spontaneous
  Country: US (occurrence: US)
  Receive Date: 20211118
  Receipt Date: 20211223
  Transmission Date: 20220303
  Serious: Yes (Other)
  Sender: FDA-Public Use
  Company Number: US-JNJFOC-20211124269

PATIENT
  Age: 51 Year
  Sex: Female

DRUGS (2)
  1. SPRAVATO [Suspect]
     Active Substance: ESKETAMINE
     Indication: Depression
     Dosage: 56 MG, TOTAL 4 DOSES.
     Dates: start: 20210727, end: 20210803
  2. SPRAVATO [Suspect]
     Active Substance: ESKETAMINE
     Dosage: 84 MG, TOTAL 15 DOSES.
     Dates: start: 20210810, end: 20211109

REACTIONS (5)
  - Hallucination, auditory [Unknown]
  - Epicondylitis [Unknown]
  - Abnormal behaviour [Unknown]
  - Euphoric mood [Unknown]
  - Mania [Unknown]

NARRATIVE: CASE EVENT DATE: 20210101
